FAERS Safety Report 23633934 (Version 1)
Quarter: 2024Q1

REPORT INFORMATION
  Report Type: Spontaneous
  Country: FR (occurrence: FR)
  Receive Date: 20240314
  Receipt Date: 20240314
  Transmission Date: 20240409
  Serious: Yes (Disabling)
  Sender: FDA-Public Use
  Company Number: None

PATIENT
  Age: 61 Year
  Sex: Female
  Weight: 64 kg

DRUGS (55)
  1. VINCRISTINE SULFATE [Suspect]
     Active Substance: VINCRISTINE SULFATE
     Indication: B-cell type acute leukaemia
     Route: 042
     Dates: start: 20181003, end: 20181030
  2. VINCRISTINE SULFATE [Suspect]
     Active Substance: VINCRISTINE SULFATE
     Route: 042
     Dates: start: 20180718, end: 20180724
  3. VINCRISTINE SULFATE [Suspect]
     Active Substance: VINCRISTINE SULFATE
     Route: 042
     Dates: start: 20180904, end: 20180910
  4. VINCRISTINE SULFATE [Suspect]
     Active Substance: VINCRISTINE SULFATE
     Route: 042
     Dates: start: 20180608, end: 20180619
  5. VINCRISTINE SULFATE [Suspect]
     Active Substance: VINCRISTINE SULFATE
     Route: 042
     Dates: start: 20180525, end: 20180607
  6. VINCRISTINE SULFATE [Suspect]
     Active Substance: VINCRISTINE SULFATE
     Route: 042
     Dates: start: 20181127, end: 20181203
  7. CYTARABINE [Suspect]
     Active Substance: CYTARABINE
     Indication: B-cell type acute leukaemia
     Route: 037
     Dates: start: 20180525, end: 20180525
  8. CYTARABINE [Suspect]
     Active Substance: CYTARABINE
     Route: 037
     Dates: start: 20181112, end: 20181112
  9. CYTARABINE [Suspect]
     Active Substance: CYTARABINE
     Route: 042
     Dates: start: 20180821, end: 20180822
  10. CYTARABINE [Suspect]
     Active Substance: CYTARABINE
     Route: 037
     Dates: start: 20180601, end: 20180601
  11. CYTARABINE [Suspect]
     Active Substance: CYTARABINE
     Route: 037
     Dates: start: 20180724, end: 20180724
  12. CYTARABINE [Suspect]
     Active Substance: CYTARABINE
     Route: 042
     Dates: start: 20181112, end: 20181113
  13. CYTARABINE [Suspect]
     Active Substance: CYTARABINE
     Route: 037
     Dates: start: 20180918, end: 20180918
  14. CYTARABINE [Suspect]
     Active Substance: CYTARABINE
     Route: 037
     Dates: start: 20180802, end: 20180802
  15. CYTARABINE [Suspect]
     Active Substance: CYTARABINE
     Route: 042
     Dates: start: 20180627, end: 20180628
  16. CYTARABINE [Suspect]
     Active Substance: CYTARABINE
     Route: 037
     Dates: start: 20181203, end: 20181203
  17. CYTARABINE [Suspect]
     Active Substance: CYTARABINE
     Route: 037
     Dates: start: 20180910, end: 20180910
  18. CYTARABINE [Suspect]
     Active Substance: CYTARABINE
     Route: 037
     Dates: start: 20181210, end: 20181210
  19. CYCLOPHOSPHAMIDE [Suspect]
     Active Substance: CYCLOPHOSPHAMIDE
     Indication: B-cell type acute leukaemia
     Route: 042
     Dates: start: 20180525, end: 20180607
  20. CYCLOPHOSPHAMIDE [Suspect]
     Active Substance: CYCLOPHOSPHAMIDE
     Route: 042
     Dates: start: 20181210, end: 20181211
  21. CYCLOPHOSPHAMIDE [Suspect]
     Active Substance: CYCLOPHOSPHAMIDE
     Route: 042
     Dates: start: 20180608, end: 20180619
  22. CYCLOPHOSPHAMIDE [Suspect]
     Active Substance: CYCLOPHOSPHAMIDE
     Route: 042
     Dates: start: 20181003, end: 20181030
  23. CYCLOPHOSPHAMIDE [Suspect]
     Active Substance: CYCLOPHOSPHAMIDE
     Route: 042
     Dates: start: 20180802, end: 20180803
  24. CYCLOPHOSPHAMIDE [Suspect]
     Active Substance: CYCLOPHOSPHAMIDE
     Route: 042
     Dates: start: 20180918, end: 20180919
  25. METHOTREXATE SODIUM [Suspect]
     Active Substance: METHOTREXATE SODIUM
     Indication: B-cell type acute leukaemia
     Route: 037
     Dates: start: 20180601, end: 20180601
  26. METHOTREXATE SODIUM [Suspect]
     Active Substance: METHOTREXATE SODIUM
     Route: 037
     Dates: start: 20181210, end: 20181210
  27. METHOTREXATE SODIUM [Suspect]
     Active Substance: METHOTREXATE SODIUM
     Route: 037
     Dates: start: 20180918, end: 20180918
  28. METHOTREXATE SODIUM [Suspect]
     Active Substance: METHOTREXATE SODIUM
     Route: 037
     Dates: start: 20180525, end: 20180525
  29. METHOTREXATE SODIUM [Suspect]
     Active Substance: METHOTREXATE SODIUM
     Route: 037
     Dates: start: 20181203, end: 20181203
  30. METHOTREXATE SODIUM [Suspect]
     Active Substance: METHOTREXATE SODIUM
     Route: 037
     Dates: start: 20181112, end: 20181112
  31. METHOTREXATE SODIUM [Suspect]
     Active Substance: METHOTREXATE SODIUM
     Route: 037
     Dates: start: 20180522, end: 20180522
  32. METHOTREXATE SODIUM [Suspect]
     Active Substance: METHOTREXATE SODIUM
     Route: 037
     Dates: start: 20180802, end: 20180802
  33. METHOTREXATE SODIUM [Suspect]
     Active Substance: METHOTREXATE SODIUM
     Route: 037
     Dates: start: 20180724, end: 20180724
  34. METHOTREXATE SODIUM [Suspect]
     Active Substance: METHOTREXATE SODIUM
     Dosage: 15 MG
     Route: 037
     Dates: start: 20180910, end: 20180910
  35. DAUNORUBICIN [Concomitant]
     Active Substance: DAUNORUBICIN
     Indication: B-cell type acute leukaemia
     Route: 042
     Dates: start: 20180608, end: 20180619
  36. DAUNORUBICIN [Concomitant]
     Active Substance: DAUNORUBICIN
     Route: 042
     Dates: start: 20181003, end: 20181030
  37. DAUNORUBICIN [Concomitant]
     Active Substance: DAUNORUBICIN
     Route: 042
     Dates: start: 20180525, end: 20180607
  38. DEXAMETHASONE [Concomitant]
     Active Substance: DEXAMETHASONE
     Indication: B-cell type acute leukaemia
     Route: 042
     Dates: start: 20180627, end: 20180628
  39. DEXAMETHASONE [Concomitant]
     Active Substance: DEXAMETHASONE
     Route: 042
     Dates: start: 20180821, end: 20180822
  40. DEXAMETHASONE [Concomitant]
     Active Substance: DEXAMETHASONE
     Route: 042
     Dates: start: 20181112, end: 20181113
  41. DEPO-MEDROL [Concomitant]
     Active Substance: METHYLPREDNISOLONE ACETATE
     Indication: B-cell type acute leukaemia
     Route: 037
     Dates: start: 20181112, end: 20181112
  42. DEPO-MEDROL [Concomitant]
     Active Substance: METHYLPREDNISOLONE ACETATE
     Route: 037
     Dates: start: 20181210, end: 20181210
  43. DEPO-MEDROL [Concomitant]
     Active Substance: METHYLPREDNISOLONE ACETATE
     Route: 037
     Dates: start: 20180918, end: 20180918
  44. DEPO-MEDROL [Concomitant]
     Active Substance: METHYLPREDNISOLONE ACETATE
     Route: 037
     Dates: start: 20180601, end: 20180601
  45. DEPO-MEDROL [Concomitant]
     Active Substance: METHYLPREDNISOLONE ACETATE
     Route: 037
     Dates: start: 20180724, end: 20180724
  46. DEPO-MEDROL [Concomitant]
     Active Substance: METHYLPREDNISOLONE ACETATE
     Route: 037
     Dates: start: 20180525, end: 20180525
  47. DEPO-MEDROL [Concomitant]
     Active Substance: METHYLPREDNISOLONE ACETATE
     Route: 037
     Dates: start: 20181203, end: 20181203
  48. DEPO-MEDROL [Concomitant]
     Active Substance: METHYLPREDNISOLONE ACETATE
     Route: 037
     Dates: start: 20180802, end: 20180802
  49. DEPO-MEDROL [Concomitant]
     Active Substance: METHYLPREDNISOLONE ACETATE
     Route: 037
     Dates: start: 20180910, end: 20180910
  50. ETOPOSIDE [Concomitant]
     Active Substance: ETOPOSIDE
     Indication: B-cell type acute leukaemia
     Route: 042
     Dates: start: 20180802, end: 20180803
  51. ETOPOSIDE [Concomitant]
     Active Substance: ETOPOSIDE
     Route: 042
     Dates: start: 20181210, end: 20181211
  52. ETOPOSIDE [Concomitant]
     Active Substance: ETOPOSIDE
     Route: 042
     Dates: start: 20180918, end: 20180919
  53. ASPARAGINASE [Concomitant]
     Active Substance: ASPARAGINASE
     Indication: B-cell type acute leukaemia
     Route: 042
     Dates: start: 20180525, end: 20180607
  54. ASPARAGINASE [Concomitant]
     Active Substance: ASPARAGINASE
     Route: 042
     Dates: start: 20181003, end: 20181030
  55. ASPARAGINASE [Concomitant]
     Active Substance: ASPARAGINASE
     Route: 042
     Dates: start: 20180608, end: 20180619

REACTIONS (2)
  - Polyneuropathy [Not Recovered/Not Resolved]
  - Peripheral sensorimotor neuropathy [Not Recovered/Not Resolved]

NARRATIVE: CASE EVENT DATE: 20180101
